FAERS Safety Report 18523370 (Version 4)
Quarter: 2021Q3

REPORT INFORMATION
  Report Type: Spontaneous
  Country: US (occurrence: US)
  Receive Date: 20201119
  Receipt Date: 20210811
  Transmission Date: 20211014
  Serious: Yes (Other)
  Sender: FDA-Public Use
  Company Number: US-PFIZER INC-2020453406

PATIENT
  Age: 72 Year
  Sex: Male

DRUGS (2)
  1. XELJANZ XR [Suspect]
     Active Substance: TOFACITINIB CITRATE
     Dosage: 11 MG
     Dates: start: 202010
  2. XELJANZ XR [Suspect]
     Active Substance: TOFACITINIB CITRATE
     Dosage: 11 MG
     Dates: start: 202103

REACTIONS (7)
  - Abdominal pain [Unknown]
  - Helicobacter infection [Recovering/Resolving]
  - Polyp [Unknown]
  - Headache [Unknown]
  - Vomiting [Unknown]
  - Dizziness [Unknown]
  - Peripheral swelling [Unknown]
